FAERS Safety Report 10717541 (Version 2)
Quarter: 2015Q1

REPORT INFORMATION
  Report Type: Spontaneous
  Country: US (occurrence: US)
  Receive Date: 20150116
  Receipt Date: 20150221
  Transmission Date: 20150721
  Serious: Yes (Other)
  Sender: FDA-Public Use
  Company Number: US-MERCK-1501USA003956

PATIENT
  Sex: Male

DRUGS (2)
  1. INVANZ [Suspect]
     Active Substance: ERTAPENEM SODIUM
     Indication: INFECTION
     Dosage: UNK
     Dates: start: 2014
  2. AMPYRA [Interacting]
     Active Substance: DALFAMPRIDINE
     Indication: PRODUCT USED FOR UNKNOWN INDICATION
     Dosage: 10 MG, Q12H
     Route: 065
     Dates: start: 20140116, end: 20141117

REACTIONS (2)
  - Seizure [Unknown]
  - Drug interaction [Unknown]

NARRATIVE: CASE EVENT DATE: 2014
